FAERS Safety Report 16084815 (Version 1)
Quarter: 2019Q1

REPORT INFORMATION
  Report Type: Spontaneous
  Country: US (occurrence: US)
  Receive Date: 20190318
  Receipt Date: 20190318
  Transmission Date: 20190418
  Serious: No
  Sender: FDA-Public Use
  Company Number: US-AVADEL SPECIALTY PHARMACEUTICALS, LLC-2019AVA00018

PATIENT
  Age: 77 Year
  Sex: Male

DRUGS (1)
  1. NOCTIVA [Suspect]
     Active Substance: DESMOPRESSIN ACETATE
     Dosage: UNK UNK, 1X/DAY AT NIGHT
     Dates: start: 20190111, end: 20190113

REACTIONS (4)
  - Burning sensation [Unknown]
  - Sneezing [Unknown]
  - Secretion discharge [Unknown]
  - Throat irritation [Unknown]

NARRATIVE: CASE EVENT DATE: 20190111
